FAERS Safety Report 6637524-2 (Version None)
Quarter: 2010Q1

REPORT INFORMATION
  Report Type: 
  Country: None (occurrence: None)
  Receive Date: 20100317
  Receipt Date: 20100308
  Transmission Date: 20100710
  Serious: Yes (Hospitalization)
  Sender: FDA-Public Use
  Company Number: US-BIOGENIDEC-2010BI008019

PATIENT
  Age: 48 Year
  Sex: Female
  Weight: 86 kg

DRUGS (1)
  1. TYSABRI [Suspect]
     Indication: MULTIPLE SCLEROSIS
     Route: 042
     Dates: start: 20081229

REACTIONS (5)
  - HEPATIC ENZYME INCREASED [None]
  - INCISION SITE PAIN [None]
  - NAUSEA [None]
  - PAIN [None]
  - UMBILICAL HERNIA [None]
